FAERS Safety Report 9753078 (Version 2)
Quarter: 2014Q1

REPORT INFORMATION
  Report Type: Spontaneous
  Country: US (occurrence: US)
  Receive Date: 20131213
  Receipt Date: 20140102
  Transmission Date: 20141002
  Serious: Yes (Other)
  Sender: FDA-Public Use
  Company Number: US-BAYER-2013-152597

PATIENT
  Age: 37 Year
  Sex: Female

DRUGS (5)
  1. YAZ [Suspect]
  2. ZOMIG [Concomitant]
     Dosage: 2.5 MG, UNK
  3. CYMBALTA [Concomitant]
     Dosage: 30 MG, UNK
  4. HYDROCODONE W/ACETAMINOPHEN [Concomitant]
  5. MELOXICAM [Concomitant]
     Dosage: 7.5 MG, UNK

REACTIONS (1)
  - Venous thrombosis limb [None]
